FAERS Safety Report 6187040-X (Version None)
Quarter: 2009Q2

REPORT INFORMATION
  Report Type: 
  Country: None (occurrence: None)
  Receive Date: 20090512
  Receipt Date: 20090504
  Transmission Date: 20091009
  Serious: Yes (Hospitalization)
  Sender: FDA-Public Use
  Company Number: DE-AMGEN-US345924

PATIENT
  Sex: Female

DRUGS (2)
  1. ENBREL [Suspect]
     Indication: RHEUMATOID ARTHRITIS
     Route: 058
     Dates: end: 20031001
  2. PREDNISOLONE [Suspect]
     Indication: RHEUMATOID ARTHRITIS
     Dosage: 15 MG DAILY

REACTIONS (2)
  - CAESAREAN SECTION [None]
  - DRUG EXPOSURE DURING PREGNANCY [None]
